FAERS Safety Report 7094636-X (Version None)
Quarter: 2010Q4

REPORT INFORMATION
  Report Type: 
  Country: None (occurrence: None)
  Receive Date: 20101110
  Receipt Date: 20101028
  Transmission Date: 20110411
  Serious: Yes (Other)
  Sender: FDA-Public Use
  Company Number: DE-MYLANLABS-2010S1019932

PATIENT
  Age: 50 Year
  Sex: Male

DRUGS (4)
  1. METODURA [Suspect]
     Indication: INTENTIONAL OVERDOSE
  2. LEVOTHYROXINE SODIUM [Suspect]
     Indication: INTENTIONAL OVERDOSE
  3. SIMVASTATIN [Suspect]
     Indication: INTENTIONAL OVERDOSE
  4. ANTIBIOTICS [Suspect]
     Indication: INTENTIONAL OVERDOSE

REACTIONS (5)
  - BRADYCARDIA [None]
  - FATIGUE [None]
  - INTENTIONAL OVERDOSE [None]
  - MULTIPLE DRUG OVERDOSE INTENTIONAL [None]
  - SUICIDE ATTEMPT [None]
